FAERS Safety Report 6918595-2 (Version None)
Quarter: 2010Q3

REPORT INFORMATION
  Report Type: 
  Country: None (occurrence: None)
  Receive Date: 20100722
  Receipt Date: 20091218
  Transmission Date: 20110219
  Serious: Yes (Other)
  Sender: FDA-Public Use
  Company Number: CERZ-1000979

PATIENT
  Age: 37 Year
  Sex: Female
  Weight: 48.1 kg

DRUGS (3)
  1. CEREZYME [Suspect]
     Indication: GAUCHER'S DISEASE
     Dosage: 30 U/KG, QW, INTRAVENOUS
     Route: 042
     Dates: start: 19990101
  2. CEREZYME [Suspect]
  3. ORAL CONTRACEPTIVE NOS (ORAL CONTRACEPTIVE NOS) [Concomitant]

REACTIONS (3)
  - DYSPNOEA [None]
  - FATIGUE [None]
  - PYREXIA [None]
